FAERS Safety Report 19384475 (Version 3)
Quarter: 2022Q1

REPORT INFORMATION
  Report Type: Other
  Country: DE (occurrence: DE)
  Receive Date: 20210608
  Receipt Date: 20220208
  Transmission Date: 20220424
  Serious: Yes (Other)
  Sender: FDA-Public Use
  Company Number: DE-SA-2021SA175748

PATIENT
  Age: 69 Year
  Sex: Female

DRUGS (5)
  1. MYCOPHENOLATE MOFETIL [Suspect]
     Active Substance: MYCOPHENOLATE MOFETIL
     Indication: Prophylaxis against transplant rejection
     Route: 065
     Dates: start: 2004, end: 201910
  2. TACROLIMUS [Suspect]
     Active Substance: TACROLIMUS
     Indication: Prophylaxis against transplant rejection
     Route: 065
     Dates: start: 2004, end: 201910
  3. METHYLPREDNISOLONE [Suspect]
     Active Substance: METHYLPREDNISOLONE
     Indication: Prophylaxis against transplant rejection
     Route: 065
     Dates: start: 2004, end: 201910
  4. METHYLPREDNISOLONE [Suspect]
     Active Substance: METHYLPREDNISOLONE
     Route: 065
     Dates: start: 2019, end: 202102
  5. CETUXIMAB [Concomitant]
     Active Substance: CETUXIMAB

REACTIONS (8)
  - Squamous cell carcinoma of skin [Recovering/Resolving]
  - Disease progression [Unknown]
  - Metastases to pleura [Recovering/Resolving]
  - Metastases to spine [Recovering/Resolving]
  - Metastases to lymph nodes [Unknown]
  - Metastases to lung [Recovering/Resolving]
  - Metastases to bone [Recovering/Resolving]
  - Drug ineffective [Unknown]

NARRATIVE: CASE EVENT DATE: 20190401
